FAERS Safety Report 23866926 (Version 1)
Quarter: 2024Q2

REPORT INFORMATION
  Report Type: Spontaneous
  Country: US (occurrence: US)
  Receive Date: 20240517
  Receipt Date: 20240517
  Transmission Date: 20240716
  Serious: No
  Sender: FDA-Public Use
  Company Number: US-HORIZON THERAPEUTICS-HZN-2024-001445

PATIENT

DRUGS (2)
  1. TEPEZZA [Suspect]
     Active Substance: TEPROTUMUMAB-TRBW
     Indication: Endocrine ophthalmopathy
     Dosage: FIRST INFUSION
     Route: 042
  2. TEPEZZA [Suspect]
     Active Substance: TEPROTUMUMAB-TRBW
     Dosage: SEVENTH INFUSION
     Route: 042

REACTIONS (5)
  - Photopsia [Unknown]
  - Therapeutic product effect incomplete [Unknown]
  - Hypoacusis [Not Recovered/Not Resolved]
  - Muscle spasms [Recovering/Resolving]
  - Eustachian tube dysfunction [Unknown]

NARRATIVE: CASE EVENT DATE: 20231101
